FAERS Safety Report 9044628 (Version 2)
Quarter: 2013Q1

REPORT INFORMATION
  Report Type: Spontaneous
  Country: JP (occurrence: JP)
  Receive Date: 20130130
  Receipt Date: 20130312
  Transmission Date: 20140127
  Serious: Yes (Life-Threatening, Other)
  Sender: FDA-Public Use
  Company Number: JP-ROCHE-1181749

PATIENT
  Age: 71 Year
  Sex: Male
  Weight: 50 kg

DRUGS (7)
  1. TAMIFLU [Suspect]
     Indication: INFLUENZA
     Route: 048
     Dates: start: 20130115, end: 20130115
  2. D-ALFA [Concomitant]
     Indication: INFLUENZA
     Route: 048
  3. TAKEPRON [Concomitant]
     Route: 048
  4. ALLELOCK [Concomitant]
     Route: 048
  5. HIRUDOID [Concomitant]
     Dosage: DOSAGE IS UNCERTAIN.
     Route: 003
  6. KINDAVATE [Concomitant]
     Dosage: DOSAGE IS UNCERTAIN.
     Route: 003
  7. CORTRIL [Concomitant]
     Dosage: 10MG, MORNING?5MG, EVENING
     Route: 048
     Dates: start: 20120918

REACTIONS (7)
  - Rhabdomyolysis [Recovered/Resolved]
  - Renal failure [Recovered/Resolved]
  - Blood creatine phosphokinase increased [Unknown]
  - Overdose [Unknown]
  - Dizziness [Unknown]
  - Decreased appetite [Unknown]
  - Gait disturbance [Unknown]
